FAERS Safety Report 5387372-9 (Version None)
Quarter: 2007Q3

REPORT INFORMATION
  Report Type: 
  Country: None (occurrence: None)
  Receive Date: 20070716
  Receipt Date: 20070709
  Transmission Date: 20080115
  Serious: Yes (Death)
  Sender: FDA-Public Use
  Company Number: TR-NOVOPROD-265364

PATIENT
  Age: 5 Day
  Sex: Female

DRUGS (1)
  1. NOVOSEVEN [Suspect]
     Indication: DISSEMINATED INTRAVASCULAR COAGULATION
     Dosage: 80 UG/KG, UNK
     Route: 042

REACTIONS (1)
  - HAEMORRHAGE [None]
